FAERS Safety Report 8813054 (Version 1)
Quarter: 2012Q4

REPORT INFORMATION
  Report Type: 
  Country: JP (occurrence: JP)
  Receive Date: 20120927
  Receipt Date: 20120927
  Transmission Date: 20130627
  Serious: Yes (Other)
  Sender: FDA-Public Use
  Company Number: JP-ROXANE LABORATORIES, INC.-2012-RO-01908RO

PATIENT
  Age: 76 Year
  Sex: Male

DRUGS (4)
  1. ROPINIROLE [Suspect]
     Indication: APATHY
     Dosage: 0.75 mg
     Route: 048
  2. ROPINIROLE [Suspect]
     Dosage: 0.125 mg
     Route: 048
  3. AMANTADINE [Suspect]
     Dosage: 100 mg
  4. AMANTADINE [Suspect]
     Dosage: 0.125 mg
     Route: 048

REACTIONS (7)
  - Delirium [Recovered/Resolved]
  - Aphasia [Recovered/Resolved]
  - Aggression [Unknown]
  - Convulsion [Recovered/Resolved]
  - Agitation [Unknown]
  - Logorrhoea [Unknown]
  - Drug ineffective [Unknown]
